FAERS Safety Report 19628283 (Version 1)
Quarter: 2021Q3

REPORT INFORMATION
  Report Type: Spontaneous
  Country: CA (occurrence: CA)
  Receive Date: 20210729
  Receipt Date: 20210729
  Transmission Date: 20211014
  Serious: Yes (Other)
  Sender: FDA-Public Use
  Company Number: CA-ROCHE-2876803

PATIENT
  Age: 70 Year
  Sex: Male
  Weight: 80 kg

DRUGS (7)
  1. ALLOPURINOL. [Concomitant]
     Active Substance: ALLOPURINOL
     Route: 048
  2. RITUXIMAB. [Suspect]
     Active Substance: RITUXIMAB
     Indication: GRANULOMATOSIS WITH POLYANGIITIS
     Route: 042
  3. ASPIRIN. [Concomitant]
     Active Substance: ASPIRIN
  4. RISEDRONATE SODIUM. [Concomitant]
     Active Substance: RISEDRONATE SODIUM
  5. EZETROL [Concomitant]
     Active Substance: EZETIMIBE
     Route: 048
  6. ROSUVASTATIN CALCIUM. [Concomitant]
     Active Substance: ROSUVASTATIN CALCIUM
  7. INSULIN [Concomitant]
     Active Substance: INSULIN NOS

REACTIONS (4)
  - Off label use [Unknown]
  - Blood pressure increased [Unknown]
  - Intentional product use issue [Unknown]
  - Glaucoma [Unknown]
